FAERS Safety Report 16161547 (Version 2)
Quarter: 2019Q2

REPORT INFORMATION
  Report Type: Spontaneous
  Country: US (occurrence: US)
  Receive Date: 20190405
  Receipt Date: 20190531
  Transmission Date: 20190711
  Serious: No
  Sender: FDA-Public Use
  Company Number: US-ASTRAZENECA-2019SE40672

PATIENT
  Sex: Male
  Weight: 104.3 kg

DRUGS (2)
  1. SYMBICORT [Suspect]
     Active Substance: BUDESONIDE\FORMOTEROL FUMARATE DIHYDRATE
     Indication: CHRONIC OBSTRUCTIVE PULMONARY DISEASE
     Dosage: 160/4.5 MCG, TWO INHALATIONS, TWO TIMES A DAY, 5/120
     Route: 055
     Dates: start: 201902
  2. SYMBICORT [Suspect]
     Active Substance: BUDESONIDE\FORMOTEROL FUMARATE DIHYDRATE
     Indication: PULMONARY CONGESTION
     Dosage: 160/4.5 MCG, TWO INHALATIONS, TWO TIMES A DAY, 5/120
     Route: 055
     Dates: start: 201902

REACTIONS (12)
  - Pulmonary pain [Recovered/Resolved]
  - Dyspnoea [Unknown]
  - Circumstance or information capable of leading to medication error [Not Recovered/Not Resolved]
  - Device issue [Unknown]
  - Chest pain [Unknown]
  - Device malfunction [Unknown]
  - Chest discomfort [Unknown]
  - Pulmonary congestion [Unknown]
  - Intentional device misuse [Not Recovered/Not Resolved]
  - Product use in unapproved indication [Not Recovered/Not Resolved]
  - Off label use [Not Recovered/Not Resolved]
  - Intentional product use issue [Unknown]
